FAERS Safety Report 19137436 (Version 2)
Quarter: 2022Q3

REPORT INFORMATION
  Report Type: Spontaneous
  Country: PH (occurrence: PH)
  Receive Date: 20210415
  Receipt Date: 20220905
  Transmission Date: 20221027
  Serious: Yes (Hospitalization, Other)
  Sender: FDA-Public Use
  Company Number: PH-LUPIN PHARMACEUTICALS INC.-2021-04585

PATIENT
  Age: 39 Year
  Sex: Female

DRUGS (1)
  1. LEVONORGESTREL AND ETHINYL ESTRADIOL [Suspect]
     Active Substance: ETHINYL ESTRADIOL\LEVONORGESTREL
     Indication: Oral contraception
     Dosage: UNK
     Route: 048

REACTIONS (2)
  - Tolosa-Hunt syndrome [Recovered/Resolved]
  - Condition aggravated [Recovered/Resolved]
